FAERS Safety Report 7359414-2 (Version None)
Quarter: 2011Q1

REPORT INFORMATION
  Report Type: 
  Country: None (occurrence: None)
  Receive Date: 20110317
  Receipt Date: 20091201
  Transmission Date: 20110831
  Serious: No
  Sender: FDA-Public Use
  Company Number: US-PFIZER INC-2009305339

PATIENT
  Sex: Female

DRUGS (4)
  1. AMLODIPINE BESYLATE [Suspect]
     Indication: HYPERTENSION
     Dosage: 5 MG, 1X/DAY
     Route: 048
     Dates: start: 20090901
  2. CLARINEX [Concomitant]
     Indication: HYPERSENSITIVITY
  3. METOPROLOL [Concomitant]
  4. CRESTOR [Concomitant]

REACTIONS (3)
  - MUSCLE SPASMS [None]
  - HEART RATE IRREGULAR [None]
  - HEART RATE INCREASED [None]
